FAERS Safety Report 23452583 (Version 2)
Quarter: 2024Q3

REPORT INFORMATION
  Report Type: Spontaneous
  Country: US (occurrence: US)
  Receive Date: 20240129
  Receipt Date: 20240730
  Transmission Date: 20241017
  Serious: No
  Sender: SAREPTA THERAPEUTICS
  Company Number: US-SAREPTA THERAPEUTICS INC.-SRP2023-004158

PATIENT
  Age: 23 Year
  Sex: Male
  Weight: 77.098 kg

DRUGS (2)
  1. AMONDYS 45 [Suspect]
     Active Substance: CASIMERSEN
     Indication: Product used for unknown indication
     Dosage: 2300 MILLIGRAM, WEEKLY
     Route: 042
     Dates: end: 20231207
  2. AMONDYS 45 [Suspect]
     Active Substance: CASIMERSEN
     Dosage: 2300 MILLIGRAM, WEEKLY
     Route: 042
     Dates: start: 20231221

REACTIONS (2)
  - Product dose omission issue [Unknown]
  - No adverse event [Unknown]

NARRATIVE: CASE EVENT DATE: 20231214
